FAERS Safety Report 4863306-8 (Version None)
Quarter: 2005Q4

REPORT INFORMATION
  Report Type: 
  Country: None (occurrence: None)
  Receive Date: 20051222
  Receipt Date: 20051213
  Transmission Date: 20060501
  Serious: Yes (Hospitalization)
  Sender: FDA-Public Use
  Company Number: US-JNJFOC-20050803461

PATIENT
  Sex: Female
  Weight: 72.57 kg

DRUGS (21)
  1. REMICADE [Suspect]
     Dosage: 3 VIALS
     Route: 042
  2. REMICADE [Suspect]
     Indication: RHEUMATOID ARTHRITIS
     Dosage: 3 VIALS
     Route: 042
  3. METHOTREXATE [Concomitant]
     Route: 048
  4. METHOTREXATE [Concomitant]
     Indication: RHEUMATOID ARTHRITIS
     Route: 048
  5. PREDNISONE TAB [Concomitant]
     Route: 048
  6. PREDNISONE TAB [Concomitant]
     Indication: RHEUMATOID ARTHRITIS
     Route: 048
  7. NSAIDS [Concomitant]
  8. ULTRAM [Concomitant]
     Dosage: AS NECESSARY
  9. ASPIRIN [Concomitant]
     Dosage: AS NEEDED
  10. TARKA [Concomitant]
  11. FOSAMAX [Concomitant]
  12. ZOCOR [Concomitant]
     Dosage: EVERY H.S.
  13. XANAX [Concomitant]
     Indication: ANXIETY
     Dosage: 2 TO 3 TIMES A DAY AS NEEDED
  14. FLUOXETINE [Concomitant]
  15. ALLEGRA [Concomitant]
  16. NASONEX [Concomitant]
     Dosage: PRN
  17. TUMS [Concomitant]
     Dosage: AS NEEDED
  18. ULTRACET [Concomitant]
  19. AMBIEN [Concomitant]
  20. PROTONIX [Concomitant]
  21. LASIX [Concomitant]

REACTIONS (10)
  - ANAEMIA [None]
  - CARDIAC FAILURE CONGESTIVE [None]
  - HAEMORRHAGE [None]
  - HYPOKALAEMIA [None]
  - HYPOPHOSPHATAEMIA [None]
  - INAPPROPRIATE ANTIDIURETIC HORMONE SECRETION [None]
  - PNEUMONIA [None]
  - PSYCHOTIC DISORDER [None]
  - RASH [None]
  - UROSEPSIS [None]
